FAERS Safety Report 21998408 (Version 3)
Quarter: 2023Q4

REPORT INFORMATION
  Report Type: Report from Study
  Country: DE (occurrence: DE)
  Receive Date: 20230216
  Receipt Date: 20231006
  Transmission Date: 20240109
  Serious: Yes (Life-Threatening, Hospitalization)
  Sender: FDA-Public Use
  Company Number: DE-ABBVIE-4309618

PATIENT
  Age: 70 Year
  Sex: Female

DRUGS (3)
  1. RINVOQ [Suspect]
     Active Substance: UPADACITINIB
     Indication: Rheumatoid arthritis
     Route: 048
     Dates: start: 202008
  2. HYDROXYCHLOROQUINE [Concomitant]
     Active Substance: HYDROXYCHLOROQUINE
     Indication: Product used for unknown indication
     Dosage: 400?START DATE: BEFORE 20AUG2020?STOP DATE: BETWEEN 20AUG2020-25NOV2020
  3. HYDROXYCHLOROQUINE [Concomitant]
     Active Substance: HYDROXYCHLOROQUINE
     Indication: Product used for unknown indication
     Dosage: 200?START DATE: BETWEEN 20AUG2020-25NOV2020?STOP DATE: BETWEEN 09MAR2022-15SEP2022

REACTIONS (4)
  - Hypertension [Recovered/Resolved]
  - Angina pectoris [Recovered/Resolved]
  - Cough [Unknown]
  - Polyneuropathy [Unknown]

NARRATIVE: CASE EVENT DATE: 20220923
